FAERS Safety Report 5886327-5 (Version None)
Quarter: 2008Q3

REPORT INFORMATION
  Report Type: 
  Country: None (occurrence: None)
  Receive Date: 20080917
  Receipt Date: 20080911
  Transmission Date: 20090109
  Serious: Yes (Life-Threatening)
  Sender: FDA-Public Use
  Company Number: B0516569A

PATIENT
  Age: 38 Year
  Sex: Female
  Weight: 50 kg

DRUGS (4)
  1. LAMICTAL [Suspect]
     Indication: DRUG USE FOR UNKNOWN INDICATION
     Dosage: 50MG PER DAY
     Route: 048
     Dates: start: 20080218, end: 20080311
  2. ESCITALOPRAM OXALATE [Suspect]
     Indication: DRUG USE FOR UNKNOWN INDICATION
     Dosage: 10MG PER DAY
     Route: 048
     Dates: start: 20080218, end: 20080311
  3. ETHYL LOFLAZEPATE [Concomitant]
     Route: 048
     Dates: start: 20080311
  4. ZOLPIDEM TARTRATE [Concomitant]
     Route: 048
     Dates: start: 20080311

REACTIONS (11)
  - ADHESION [None]
  - DYSKINESIA [None]
  - ERYTHEMA [None]
  - GENITAL ULCERATION [None]
  - LIP SWELLING [None]
  - PYREXIA [None]
  - RASH [None]
  - SKIN EXFOLIATION [None]
  - SKIN HYPERPIGMENTATION [None]
  - SKIN LESION [None]
  - STEVENS-JOHNSON SYNDROME [None]
